FAERS Safety Report 6217926-9 (Version None)
Quarter: 2009Q2

REPORT INFORMATION
  Report Type: 
  Country: None (occurrence: None)
  Receive Date: 20090608
  Receipt Date: 20090527
  Transmission Date: 20091009
  Serious: Yes (Other)
  Sender: FDA-Public Use
  Company Number: US-TEVA-196219USA

PATIENT
  Sex: Female

DRUGS (3)
  1. PLAN B TABLET, LEVONORGESTREL, 0.75MG [Suspect]
     Indication: POST COITAL CONTRACEPTION
     Route: 048
     Dates: start: 20090526, end: 20090526
  2. ALPRAZOLAM [Suspect]
  3. SLEEPING MEDICATION [Suspect]

REACTIONS (3)
  - CONVULSION [None]
  - SYNCOPE [None]
  - VOMITING [None]
